FAERS Safety Report 21772049 (Version 1)
Quarter: 2022Q4

REPORT INFORMATION
  Report Type: Spontaneous
  Country: US (occurrence: US)
  Receive Date: 20221223
  Receipt Date: 20221223
  Transmission Date: 20230113
  Serious: No
  Sender: FDA-Public Use
  Company Number: US-CTI BIOPHARMA-2022US03010

PATIENT

DRUGS (3)
  1. VONJO [Suspect]
     Active Substance: PACRITINIB
     Indication: Myelofibrosis
     Dosage: 100 MG, BID
     Route: 048
     Dates: start: 20220421
  2. ARMOUR THYROID [Concomitant]
     Active Substance: THYROID, PORCINE
  3. EMPAVELI [Concomitant]
     Active Substance: PEGCETACOPLAN
     Route: 058

REACTIONS (2)
  - Hepatic enzyme increased [Unknown]
  - SARS-CoV-2 test positive [Unknown]
